FAERS Safety Report 13864400 (Version 2)
Quarter: 2017Q3

REPORT INFORMATION
  Report Type: Spontaneous
  Country: DE (occurrence: DE)
  Receive Date: 20170814
  Receipt Date: 20170914
  Transmission Date: 20171127
  Serious: Yes (Hospitalization, Other)
  Sender: FDA-Public Use
  Company Number: DE-OTSUKA-2017_017444

PATIENT
  Age: 80 Year
  Sex: Male

DRUGS (5)
  1. BELOC [Concomitant]
     Active Substance: METOPROLOL TARTRATE
     Indication: CARDIAC FAILURE
     Dosage: 23.7 MG, QD (IN MORNING)
     Route: 048
  2. METRONIDAZOLE. [Concomitant]
     Active Substance: METRONIDAZOLE
     Indication: PNEUMONIA
     Dosage: 500 MG, UNK
     Route: 042
  3. CLEXANE [Concomitant]
     Active Substance: ENOXAPARIN SODIUM
     Indication: PRODUCT USED FOR UNKNOWN INDICATION
     Dosage: 0.6 ML, BID
     Route: 065
  4. ABILIFY MAINTENA [Suspect]
     Active Substance: ARIPIPRAZOLE
     Indication: BIPOLAR DISORDER
     Dosage: 400 MG, QM
     Route: 030
  5. PANTOPRAZOLE [Concomitant]
     Active Substance: PANTOPRAZOLE
     Indication: PRODUCT USED FOR UNKNOWN INDICATION
     Dosage: 20 MG, QD (1-0-0)
     Route: 048

REACTIONS (23)
  - Staphylococcal infection [Unknown]
  - Bradycardia [Unknown]
  - Respiratory acidosis [Unknown]
  - Somnolence [Not Recovered/Not Resolved]
  - Cardiomegaly [Unknown]
  - Sinus node dysfunction [Unknown]
  - Off label use [Unknown]
  - Bundle branch block left [Unknown]
  - Hypothermia [Not Recovered/Not Resolved]
  - Neuroleptic malignant syndrome [Unknown]
  - Gastrointestinal hypomotility [Unknown]
  - Respiratory tract congestion [Unknown]
  - Inadequate diet [Unknown]
  - Respiratory failure [Unknown]
  - Pneumonia [Unknown]
  - Drug interaction [Unknown]
  - Carbon dioxide abnormal [Unknown]
  - General physical health deterioration [Not Recovered/Not Resolved]
  - Pneumonia [Not Recovered/Not Resolved]
  - Heart rate irregular [Unknown]
  - Hypertension [Unknown]
  - Blood pressure abnormal [Not Recovered/Not Resolved]
  - Long QT syndrome [Unknown]

NARRATIVE: CASE EVENT DATE: 20170726
